FAERS Safety Report 8579157-7 (Version None)
Quarter: 2012Q2

REPORT INFORMATION
  Report Type: 
  Country: None (occurrence: None)
  Receive Date: 20120423
  Receipt Date: 20100730
  Transmission Date: 20120825
  Serious: Yes (Other)
  Sender: FDA-Public Use
  Company Number: PHHY2010US40574

PATIENT
  Age: 69 Year
  Sex: Female

DRUGS (2)
  1. EXJADE [Suspect]
     Indication: IRON METABOLISM DISORDER
     Dosage: 1125 MG, QD, ORAL, 1125 MG, DAILY, ORAL, 1125 MG, DAILY
     Route: 048
     Dates: start: 20100614, end: 20100621
  2. EXJADE [Suspect]
     Indication: IRON METABOLISM DISORDER
     Dosage: 1125 MG, QD, ORAL, 1125 MG, DAILY, ORAL, 1125 MG, DAILY
     Route: 048
     Dates: start: 20100526, end: 20100602

REACTIONS (6)
  - PYREXIA [None]
  - RASH [None]
  - ABDOMINAL PAIN UPPER [None]
  - DIARRHOEA [None]
  - NAUSEA [None]
  - VOMITING [None]
